FAERS Safety Report 24331017 (Version 4)
Quarter: 2025Q2

REPORT INFORMATION
  Report Type: Report from Study
  Country: US (occurrence: US)
  Receive Date: 20240918
  Receipt Date: 20250606
  Transmission Date: 20250717
  Serious: Yes (Other)
  Sender: ROCHE
  Company Number: US-ROCHE-10000076337

PATIENT
  Age: 65 Year
  Sex: Male

DRUGS (5)
  1. ESBRIET [Suspect]
     Active Substance: PIRFENIDONE
     Indication: Pulmonary fibrosis
     Dosage: TAKE 3 CAPSULE(S) BY MOUTH 3 TIMES A DAY;?TAKE 3 CAPSULES BY MOUTH IN THE MORNING AND TAKE 3 CAPSULE
     Route: 048
  2. ESBRIET [Suspect]
     Active Substance: PIRFENIDONE
     Indication: Lung disorder
  3. ESBRIET [Suspect]
     Active Substance: PIRFENIDONE
     Indication: Pneumonia
  4. ESBRIET [Suspect]
     Active Substance: PIRFENIDONE
     Indication: Infection
  5. ESBRIET [Suspect]
     Active Substance: PIRFENIDONE
     Indication: Bronchitis chronic

REACTIONS (2)
  - Lung neoplasm malignant [Unknown]
  - Prostate cancer [Unknown]
